FAERS Safety Report 8430458-2 (Version None)
Quarter: 2012Q2

REPORT INFORMATION
  Report Type: 
  Country: None (occurrence: None)
  Receive Date: 20120606
  Receipt Date: 20120606
  Transmission Date: 20120825
  Serious: No
  Sender: FDA-Public Use
  Company Number: None

PATIENT
  Age: 54 Year
  Sex: Male
  Weight: 75.2 kg

DRUGS (2)
  1. MORPHINE [Suspect]
     Dosage: MG PO
     Route: 048
     Dates: start: 20120310, end: 20120311
  2. LORAZEPAM [Suspect]
     Dosage: 0.5 MG BID PO
     Route: 048
     Dates: start: 20120309, end: 20120311

REACTIONS (1)
  - SEDATION [None]
